FAERS Safety Report 9593819 (Version 2)
Quarter: 2013Q4

REPORT INFORMATION
  Report Type: Report from Study
  Country: CA (occurrence: CA)
  Receive Date: 20131004
  Receipt Date: 20131120
  Transmission Date: 20140711
  Serious: Yes (Hospitalization)
  Sender: FDA-Public Use
  Company Number: CA-JNJFOC-20131000515

PATIENT
  Age: 58 Year
  Sex: Male

DRUGS (20)
  1. REMICADE [Suspect]
     Indication: ANKYLOSING SPONDYLITIS
     Route: 042
     Dates: start: 20091014
  2. PANTOPRAZOLE [Concomitant]
     Route: 065
  3. PMS-GABAPENTIN [Concomitant]
     Route: 065
  4. HYDROMORPH CONTIN [Concomitant]
     Route: 065
  5. HYDROMORPHONE [Concomitant]
     Route: 065
  6. CRESTOR [Concomitant]
     Route: 065
  7. COVERSYL [Concomitant]
     Route: 065
  8. RHOXAL-BISOPROLOL [Concomitant]
     Route: 065
  9. VENTOLIN [Concomitant]
     Route: 065
  10. SPIRIVA [Concomitant]
     Route: 065
  11. ADVAIR [Concomitant]
     Route: 065
  12. ONBREZ [Concomitant]
     Route: 065
  13. APO-QUININE [Concomitant]
     Route: 065
  14. APO-IPRAVENT [Concomitant]
     Route: 045
  15. LORAZEPAM [Concomitant]
     Route: 065
  16. DAXAS [Concomitant]
     Route: 065
  17. MEZAVANT [Concomitant]
     Route: 065
  18. HYDROCHLOROTHIAZIDE [Concomitant]
     Route: 065
  19. ASPIRIN [Concomitant]
     Route: 065
  20. GRAVOL [Concomitant]
     Indication: PREMEDICATION
     Route: 065

REACTIONS (5)
  - Renal failure [Unknown]
  - Bacteraemia [Unknown]
  - Oesophageal candidiasis [Unknown]
  - Hiatus hernia [Unknown]
  - Gastrointestinal infection [Unknown]
